FAERS Safety Report 16609869 (Version 1)
Quarter: 2019Q3

REPORT INFORMATION
  Report Type: Spontaneous
  Country: DE (occurrence: DE)
  Receive Date: 20190722
  Receipt Date: 20190722
  Transmission Date: 20191004
  Serious: Yes (Other)
  Sender: FDA-Public Use
  Company Number: DE-PROVELL PHARMACEUTICALS-2071107

PATIENT
  Sex: Female

DRUGS (2)
  1. OPIPRAMOL [Concomitant]
     Active Substance: OPIPRAMOL
  2. EUTHYROX [Suspect]
     Active Substance: LEVOTHYROXINE SODIUM
     Indication: AUTOIMMUNE THYROIDITIS

REACTIONS (11)
  - Weight increased [None]
  - Palpitations [None]
  - Depression [None]
  - Blood thyroid stimulating hormone increased [None]
  - Inappropriate schedule of product administration [None]
  - Restlessness [None]
  - Blood pressure decreased [None]
  - Syncope [None]
  - Anxiety [None]
  - Hyperhidrosis [None]
  - Progesterone decreased [None]
